FAERS Safety Report 9735522 (Version 1)
Quarter: 2013Q4

REPORT INFORMATION
  Report Type: Spontaneous
  Country: US (occurrence: None)
  Receive Date: 20131205
  Receipt Date: 20131205
  Transmission Date: 20140711
  Serious: Yes (Hospitalization)
  Sender: FDA-Public Use
  Company Number: None

PATIENT
  Age: 49 Year
  Sex: Male
  Weight: 87.2 kg

DRUGS (2)
  1. CARFILZOMIB 56MG/MEQ IV ONYX [Suspect]
     Indication: PLASMA CELL MYELOMA
     Dosage: DAYS1,2,8,9,15,16
     Dates: start: 20121029, end: 201211
  2. DEXAMETHASONE [Suspect]
     Dosage: DAYS1,2,8,9,15,16

REACTIONS (5)
  - Nausea [None]
  - Vomiting [None]
  - Dyspnoea [None]
  - Pulmonary embolism [None]
  - Renal failure acute [None]
